FAERS Safety Report 15765347 (Version 1)
Quarter: 2018Q4

REPORT INFORMATION
  Report Type: Spontaneous
  Country: JP (occurrence: JP)
  Receive Date: 20181227
  Receipt Date: 20181227
  Transmission Date: 20190205
  Serious: Yes (Hospitalization, Other)
  Sender: FDA-Public Use
  Company Number: JP-SA-2018SA391627

PATIENT
  Age: 58 Year
  Sex: Male

DRUGS (1)
  1. SEVELAMER HYDROCHLORIDE. [Suspect]
     Active Substance: SEVELAMER HYDROCHLORIDE
     Indication: HYPERPHOSPHATAEMIA
     Dosage: 2250 MG, QD
     Route: 065

REACTIONS (6)
  - Necrosis [Unknown]
  - Colon injury [Unknown]
  - Diverticular perforation [Unknown]
  - Diverticulum intestinal [Unknown]
  - Abdominal tenderness [Unknown]
  - Constipation [Unknown]
